FAERS Safety Report 10786568 (Version 3)
Quarter: 2015Q1

REPORT INFORMATION
  Report Type: Spontaneous
  Country: IT (occurrence: IT)
  Receive Date: 20150211
  Receipt Date: 20150324
  Transmission Date: 20150721
  Serious: Yes (Death)
  Sender: FDA-Public Use
  Company Number: IT-PFIZER INC-2015052812

PATIENT
  Age: 57 Year
  Sex: Female

DRUGS (5)
  1. SEREUPIN [Concomitant]
     Active Substance: PAROXETINE HYDROCHLORIDE
     Dosage: 20 MG, UNK
  2. DIFLUCAN [Concomitant]
     Active Substance: FLUCONAZOLE
     Dosage: 100 MG, UNK
     Dates: start: 20150113
  3. ZYVOXID [Suspect]
     Active Substance: LINEZOLID
     Indication: PERITONITIS
     Dosage: 600 MG, 2X/DAY
     Route: 048
     Dates: start: 20150113, end: 20150202
  4. COUMADIN [Interacting]
     Active Substance: WARFARIN SODIUM
     Dosage: UNK
  5. CIPROXIN [Concomitant]
     Active Substance: CIPROFLOXACIN
     Dosage: 250 MG, 2X/DAY
     Dates: start: 20150113

REACTIONS (7)
  - Thrombocytopenia [Fatal]
  - International normalised ratio increased [Unknown]
  - Anaemia [Unknown]
  - Leukopenia [Fatal]
  - Acute hepatic failure [Fatal]
  - Lactic acidosis [Fatal]
  - Drug interaction [Unknown]

NARRATIVE: CASE EVENT DATE: 2015
